FAERS Safety Report 13664012 (Version 3)
Quarter: 2017Q3

REPORT INFORMATION
  Report Type: Report from Study
  Country: US (occurrence: US)
  Receive Date: 20170619
  Receipt Date: 20170713
  Transmission Date: 20171127
  Serious: Yes (Other)
  Sender: FDA-Public Use
  Company Number: US-PFIZER INC-2017206033

PATIENT
  Age: 62 Year
  Sex: Female

DRUGS (2)
  1. IBRANCE [Suspect]
     Active Substance: PALBOCICLIB
     Dosage: 75 MG, ALTERNATE DAY (EVERY OTHER DAY)
     Route: 048
     Dates: start: 20170616
  2. IBRANCE [Suspect]
     Active Substance: PALBOCICLIB
     Indication: BREAST CANCER
     Dosage: 75 MG, CYCLIC (DAILY 3 WEEKS ON/1 WEEK OFF)
     Route: 048
     Dates: start: 20170505, end: 20170602

REACTIONS (10)
  - Thrombocytopenia [Unknown]
  - Nausea [Unknown]
  - Oral herpes [Unknown]
  - Pruritus [Unknown]
  - Bone marrow failure [Recovering/Resolving]
  - Sleep disorder [Unknown]
  - Joint dislocation [Recovered/Resolved]
  - Fatigue [Unknown]
  - Pyrexia [Unknown]
  - Cough [Unknown]

NARRATIVE: CASE EVENT DATE: 201705
